FAERS Safety Report 15414382 (Version 1)
Quarter: 2018Q3

REPORT INFORMATION
  Report Type: Spontaneous
  Country: US (occurrence: US)
  Receive Date: 20180921
  Receipt Date: 20180921
  Transmission Date: 20181010
  Serious: No
  Sender: FDA-Public Use
  Company Number: US-NOVOPROD-607640

PATIENT
  Age: 83 Year
  Sex: Female

DRUGS (4)
  1. LASIX [Concomitant]
     Active Substance: FUROSEMIDE
     Indication: PRODUCT USED FOR UNKNOWN INDICATION
     Dosage: UNK UNK, QD
  2. VICTOZA [Suspect]
     Active Substance: LIRAGLUTIDE
     Indication: TYPE 2 DIABETES MELLITUS
     Dosage: 0.6 MG, UNK
     Route: 058
     Dates: start: 201805, end: 20180622
  3. MOBIC [Concomitant]
     Active Substance: MELOXICAM
     Indication: ARTHRITIS
     Dosage: UNK
  4. VICTOZA [Suspect]
     Active Substance: LIRAGLUTIDE
     Dosage: 0.6 MG, UNK
     Route: 058
     Dates: start: 201805, end: 20180622

REACTIONS (3)
  - Arthralgia [Recovered/Resolved]
  - Oedema peripheral [Recovering/Resolving]
  - Dyspnoea [Recovering/Resolving]

NARRATIVE: CASE EVENT DATE: 2018
